FAERS Safety Report 7758576-2 (Version None)
Quarter: 2011Q3

REPORT INFORMATION
  Report Type: 
  Country: None (occurrence: None)
  Receive Date: 20110919
  Receipt Date: 20110907
  Transmission Date: 20111222
  Serious: Yes (Other)
  Sender: FDA-Public Use
  Company Number: US-ELI_LILLY_AND_COMPANY-US201108005379

PATIENT
  Sex: Female
  Weight: 68.934 kg

DRUGS (5)
  1. PHENERGAN HCL [Concomitant]
     Dosage: UNK, PRN
  2. FORTEO [Suspect]
     Indication: OSTEOPOROSIS
     Dosage: 20 UG, UNK
     Dates: start: 20050501, end: 20080101
  3. LIDOCAINE W/ EPINEPHRINE [Concomitant]
  4. PERCOCET [Concomitant]
     Dosage: UNK, PRN
  5. CLINDAMYCIN [Concomitant]

REACTIONS (4)
  - GOITRE [None]
  - THYROID CANCER [None]
  - AUTOIMMUNE THYROIDITIS [None]
  - FATIGUE [None]
